FAERS Safety Report 6120145-8 (Version None)
Quarter: 2009Q1

REPORT INFORMATION
  Report Type: 
  Country: None (occurrence: None)
  Receive Date: 20090312
  Receipt Date: 20090305
  Transmission Date: 20090719
  Serious: Yes (Other)
  Sender: FDA-Public Use
  Company Number: CIO09005426

PATIENT
  Sex: Male

DRUGS (3)
  1. NYQUIL ADULT, VERSION/FLAVOR UNKNOWN (ETHANOL 10-25 %, DEXTROMETHORPHA [Suspect]
     Indication: NASOPHARYNGITIS
     Dosage: ORAL
     Route: 048
  2. DAYQUIL COLD/FLU RELIEF, VERSION UNKNOWN (DEXTROMETHORPHAN HYDROBROMID [Suspect]
     Indication: NASOPHARYNGITIS
     Dosage: ORAL
     Route: 048
  3. NYQUIL COLD/FLU, ALCOHOL 10% PSEUDOEPHEDRINE FREE, CHERRY FLVR(PARACET [Suspect]
     Indication: NASOPHARYNGITIS
     Dosage: ORAL
     Route: 048

REACTIONS (4)
  - COUGH [None]
  - DRUG INEFFECTIVE [None]
  - GRAND MAL CONVULSION [None]
  - INSOMNIA [None]
